FAERS Safety Report 19000028 (Version 1)
Quarter: 2021Q1

REPORT INFORMATION
  Report Type: Report from Study
  Country: None (occurrence: IN)
  Receive Date: 20210312
  Receipt Date: 20210312
  Transmission Date: 20210420
  Serious: Yes (Death)
  Sender: FDA-Public Use
  Company Number: IN-ABBVIE-21P-078-3811255-00

PATIENT
  Age: 29 Year
  Sex: Female

DRUGS (1)
  1. CREON [Suspect]
     Active Substance: PANCRELIPASE AMYLASE\PANCRELIPASE LIPASE\PANCRELIPASE PROTEASE
     Indication: PANCREATITIS ACUTE
     Dosage: 3 DOSES PER DAY
     Route: 048
     Dates: start: 20190426

REACTIONS (2)
  - Abdominal distension [Unknown]
  - Blood glucose decreased [Fatal]

NARRATIVE: CASE EVENT DATE: 20210213
